FAERS Safety Report 9179479 (Version 1)
Quarter: 2012Q4

REPORT INFORMATION
  Report Type: 
  Country: US (occurrence: US)
  Receive Date: 20121029
  Receipt Date: 20121029
  Transmission Date: 20130627
  Serious: No
  Sender: FDA-Public Use
  Company Number: US-AMGEN-USASP2012055721

PATIENT
  Age: 68 Year
  Sex: Female
  Weight: 44.44 kg

DRUGS (8)
  1. ENBREL [Suspect]
     Indication: PRODUCT USED FOR UNKNOWN INDICATION
     Dosage: 25 mg, 2 times/wk
     Route: 058
  2. COREG [Concomitant]
     Dosage: 12.5 mg, UNK
     Route: 048
  3. PLAQUENIL                          /00072602/ [Concomitant]
     Dosage: 200 mg, UNK
     Route: 048
  4. LASIX                              /00032601/ [Concomitant]
     Dosage: 20 mg, UNK
     Route: 048
  5. PREDNISONE [Concomitant]
     Dosage: 2.5 mg, UNK
     Route: 048
  6. TRAVATAN Z [Concomitant]
     Dosage: 0.004 %, UNK
     Route: 048
  7. SIMVASTATIN [Concomitant]
     Dosage: 40 mg, UNK
     Route: 048
  8. TIMOLOL [Concomitant]
     Dosage: 0.25 %, UNK
     Route: 048

REACTIONS (1)
  - Fatigue [Unknown]
